FAERS Safety Report 9004284 (Version 1)
Quarter: 2013Q1

REPORT INFORMATION
  Report Type: Spontaneous
  Country: GR (occurrence: GR)
  Receive Date: 20130108
  Receipt Date: 20130108
  Transmission Date: 20140127
  Serious: Yes (Hospitalization, Other)
  Sender: FDA-Public Use
  Company Number: GR-ROCHE-1177319

PATIENT
  Sex: Male

DRUGS (2)
  1. PEGASYS [Suspect]
     Indication: CHRONIC HEPATITIS B
     Route: 065
  2. VIREAD [Suspect]
     Indication: CHRONIC HEPATITIS B
     Route: 065

REACTIONS (1)
  - Myocarditis [Not Recovered/Not Resolved]
